FAERS Safety Report 11172239 (Version 1)
Quarter: 2015Q2

REPORT INFORMATION
  Report Type: Spontaneous
  Country: CA (occurrence: CA)
  Receive Date: 20150608
  Receipt Date: 20150608
  Transmission Date: 20150821
  Serious: Yes (Other)
  Sender: FDA-Public Use
  Company Number: CA-ELI_LILLY_AND_COMPANY-CA201506000815

PATIENT
  Sex: Female

DRUGS (1)
  1. FORTEO [Suspect]
     Active Substance: TERIPARATIDE
     Indication: OSTEOPOROSIS
     Dosage: UNK, QD
     Route: 058

REACTIONS (16)
  - Toxicity to various agents [Unknown]
  - Muscular weakness [Unknown]
  - Balance disorder [Unknown]
  - Vomiting [Unknown]
  - Neurotoxicity [Unknown]
  - Dizziness [Unknown]
  - Gait disturbance [Unknown]
  - Asthenia [Unknown]
  - Dyspnoea [Unknown]
  - Nausea [Unknown]
  - Reaction to preservatives [Unknown]
  - Cough [Unknown]
  - Malaise [Unknown]
  - Headache [Unknown]
  - Muscle spasms [Unknown]
  - Pain in jaw [Unknown]
